FAERS Safety Report 4727487-9 (Version None)
Quarter: 2005Q3

REPORT INFORMATION
  Report Type: 
  Country: None (occurrence: None)
  Receive Date: 20050727
  Receipt Date: 20050727
  Transmission Date: 20060218
  Serious: No
  Sender: FDA-Public Use
  Company Number: None

PATIENT
  Age: 14 Year
  Sex: Female

DRUGS (1)
  1. PAXIL [Suspect]
     Indication: POSTPARTUM DEPRESSION

REACTIONS (1)
  - SUICIDAL IDEATION [None]
